FAERS Safety Report 4357419-7 (Version None)
Quarter: 2004Q2

REPORT INFORMATION
  Report Type: 
  Country: None (occurrence: None)
  Receive Date: 20040506
  Receipt Date: 20040423
  Transmission Date: 20050107
  Serious: Yes (Hospitalization, Other)
  Sender: FDA-Public Use
  Company Number: HQWYE576623APR04

PATIENT
  Age: 9 Month
  Sex: Female

DRUGS (3)
  1. CHILDREN'S ADVIL [Suspect]
     Indication: PYREXIA
     Dosage: 1 DOSE PER WEIGHT THREE TIMES DAILY
     Route: 048
     Dates: start: 20040329
  2. ALOPLASTINE (GLYCEROL/TALC/ZINC OXIDE,) [Suspect]
     Indication: VARICELLA
     Dosage: TOPICAL
     Route: 061
     Dates: start: 20040329
  3. DIMEGAN (BROMPHENIRAMINE MALEATE) [Concomitant]

REACTIONS (4)
  - ASTHENIA [None]
  - BACTERIAL INFECTION [None]
  - CELLULITIS [None]
  - VARICELLA [None]
